FAERS Safety Report 9087340 (Version 1)
Quarter: 2013Q1

REPORT INFORMATION
  Report Type: Spontaneous
  Country: AT (occurrence: AT)
  Receive Date: 20130131
  Receipt Date: 20130131
  Transmission Date: 20140127
  Serious: Yes (Other)
  Sender: FDA-Public Use
  Company Number: AT-TEVA-383298ISR

PATIENT
  Sex: Female
  Weight: 90 kg

DRUGS (7)
  1. ALPRAZOLAM [Suspect]
     Dosage: .5 MILLIGRAM DAILY;
     Route: 048
  2. EUTHYROX [Concomitant]
     Dosage: 1/0/0
     Route: 048
  3. AROMASIN [Concomitant]
     Dosage: 1/0/0 TREATMENT STARTED APPORXIMATELY 4,5 YEARS AGO
     Route: 048
  4. PANTOLOC [Concomitant]
     Dosage: 1/0/0
     Route: 048
  5. CALCIMAGON D3 [Concomitant]
     Dosage: 0/1/0
     Route: 048
  6. HYDROCORTON [Concomitant]
     Dosage: 20 MILLIGRAM DAILY; PATIENT TAKES HALF OF A 20 MG TABLET TWICE A DAY
     Route: 048
  7. MIRTAZAPINE 30 MG HEXAL [Concomitant]
     Dosage: 30 MILLIGRAM DAILY; 0/0/1
     Route: 048

REACTIONS (1)
  - Blood glucose increased [Not Recovered/Not Resolved]
